FAERS Safety Report 20885134 (Version 1)
Quarter: 2022Q2

REPORT INFORMATION
  Report Type: Spontaneous
  Country: AT (occurrence: AT)
  Receive Date: 20220527
  Receipt Date: 20220527
  Transmission Date: 20220721
  Serious: Yes (Other)
  Sender: FDA-Public Use
  Company Number: AT-MLMSERVICE-20220517-3566011-1

PATIENT
  Age: 20 Year
  Sex: Female

DRUGS (5)
  1. METHOTREXATE [Suspect]
     Active Substance: METHOTREXATE
     Indication: Osteosarcoma
     Dates: start: 2013
  2. CISPLATIN [Concomitant]
     Active Substance: CISPLATIN
     Indication: Osteosarcoma
     Dates: start: 2013
  3. DOXORUBICIN [Concomitant]
     Active Substance: DOXORUBICIN
     Indication: Osteosarcoma
     Dates: start: 2013
  4. IFOSFAMIDE [Concomitant]
     Active Substance: IFOSFAMIDE
     Indication: Osteosarcoma
     Dosage: 2800 MG/M2
     Dates: start: 2013
  5. ETOPOSIDE [Concomitant]
     Active Substance: ETOPOSIDE
     Indication: Osteosarcoma
     Dosage: 50% DOSE REDUCTION

REACTIONS (2)
  - Hepatic enzyme increased [Unknown]
  - Drug clearance decreased [Unknown]

NARRATIVE: CASE EVENT DATE: 20140101
